FAERS Safety Report 11155971 (Version 1)
Quarter: 2015Q2

REPORT INFORMATION
  Report Type: Spontaneous
  Country: US (occurrence: None)
  Receive Date: 20150601
  Receipt Date: 20150601
  Transmission Date: 20150821
  Serious: Yes (Disabling)
  Sender: FDA-Public Use
  Company Number: None

PATIENT
  Age: 22 Year
  Sex: Female
  Weight: 61.24 kg

DRUGS (3)
  1. ACTICLATE [Suspect]
     Active Substance: DOXYCYCLINE HYCLATE
     Indication: ACNE
     Route: 048
     Dates: start: 201501, end: 201503
  2. PREDNISONE. [Concomitant]
     Active Substance: PREDNISONE
  3. CREAMS [Concomitant]

REACTIONS (4)
  - Drug reaction with eosinophilia and systemic symptoms [None]
  - Hypersensitivity [None]
  - Photosensitivity reaction [None]
  - Alopecia [None]

NARRATIVE: CASE EVENT DATE: 20150305
